FAERS Safety Report 13411767 (Version 3)
Quarter: 2019Q3

REPORT INFORMATION
  Report Type: Spontaneous
  Country: US (occurrence: US)
  Receive Date: 20170406
  Receipt Date: 20190822
  Transmission Date: 20191004
  Serious: No
  Sender: FDA-Public Use
  Company Number: US-JNJFOC-20170304266

PATIENT
  Age: 8 Year
  Sex: Male

DRUGS (1)
  1. RISPERDAL [Suspect]
     Active Substance: RISPERIDONE
     Indication: SLEEP TERROR
     Dosage: VARYING DOSE OF 0.5 MG,1.0 MG TO 1.5 MG
     Route: 048
     Dates: start: 19981215, end: 20080424

REACTIONS (5)
  - Product use in unapproved indication [Unknown]
  - Off label use [Unknown]
  - Emotional distress [Unknown]
  - Gynaecomastia [Unknown]
  - Somnolence [Unknown]

NARRATIVE: CASE EVENT DATE: 19981215
